FAERS Safety Report 7114641-4 (Version None)
Quarter: 2010Q4

REPORT INFORMATION
  Report Type: 
  Country: None (occurrence: None)
  Receive Date: 20101121
  Receipt Date: 20101109
  Transmission Date: 20110411
  Serious: Yes (Hospitalization)
  Sender: FDA-Public Use
  Company Number: DE-BRISTOL-MYERS SQUIBB COMPANY-15396757

PATIENT
  Age: 37 Year
  Sex: Male

DRUGS (3)
  1. CETUXIMAB [Suspect]
     Indication: METASTASES TO PERITONEUM
     Dosage: INITIAL AND LAST INFUSION ON 07OCT2010
     Route: 042
     Dates: start: 20101007, end: 20101007
  2. IRINOTECAN HCL [Suspect]
     Indication: METASTASES TO PERITONEUM
     Dosage: INITIAL AND LAST INFUSION ON 07OCT2010
     Route: 042
     Dates: start: 20101007, end: 20101007
  3. CAPECITABINE [Suspect]
     Indication: METASTASES TO PERITONEUM
     Dosage: INITIAL AND LAST INFUSION ON 07OCT2010
     Route: 048
     Dates: start: 20101007, end: 20101007

REACTIONS (1)
  - SUBILEUS [None]
